FAERS Safety Report 4349325-9 (Version None)
Quarter: 2004Q2

REPORT INFORMATION
  Report Type: 
  Country: None (occurrence: None)
  Receive Date: 20040426
  Receipt Date: 20040414
  Transmission Date: 20050107
  Serious: No
  Sender: FDA-Public Use
  Company Number: 04H-066-0257636-00

PATIENT
  Sex: 0

DRUGS (5)
  1. LEUCOVORIN CALCIUM [Suspect]
     Indication: CHEMOTHERAPY
     Dosage: 100 MG/M2, WEEKLY, INTRAVENOUS
     Route: 042
  2. FLUOROURACIL [Suspect]
     Indication: CHEMOTHERAPY
     Dosage: 500 MG/M2, WEEKLY, INTRAVENOUS
     Route: 042
  3. ETOPOSIDE [Suspect]
     Indication: CHEMOTHERAPY
     Dosage: 80 MG/M2, WEEKLY, INTRAVENOUS
     Route: 042
  4. ONDANSETRON HCL [Concomitant]
  5. SODIUM CHLORIDE INJ [Concomitant]

REACTIONS (2)
  - DRUG TOXICITY [None]
  - MUCOSAL INFLAMMATION [None]
